FAERS Safety Report 19504140 (Version 1)
Quarter: 2021Q3

REPORT INFORMATION
  Report Type: Report from Study
  Country: KR (occurrence: KR)
  Receive Date: 20210707
  Receipt Date: 20210707
  Transmission Date: 20211014
  Serious: Yes (Hospitalization)
  Sender: FDA-Public Use
  Company Number: KR-AMERICAN REGENT INC-2021001665

PATIENT
  Age: 60 Year
  Sex: Female
  Weight: 45 kg

DRUGS (3)
  1. FERINJECT [Suspect]
     Active Substance: FERRIC CARBOXYMALTOSE
     Indication: ANAEMIA
     Dosage: 1000 MG, ONCE
     Route: 042
     Dates: start: 20210603, end: 20210603
  2. GENEXOL                            /00282201/ [Concomitant]
     Active Substance: NONOXYNOL-10
     Indication: PRODUCT USED FOR UNKNOWN INDICATION
     Dosage: UNK
     Route: 065
     Dates: start: 20210318
  3. CISPLAN [Concomitant]
     Active Substance: CISPLATIN
     Indication: PRODUCT USED FOR UNKNOWN INDICATION
     Dosage: UNK
     Route: 065
     Dates: start: 20210318

REACTIONS (3)
  - Febrile neutropenia [Recovered/Resolved]
  - Asthenia [Unknown]
  - Myalgia [Unknown]

NARRATIVE: CASE EVENT DATE: 20210611
